FAERS Safety Report 4753696-9 (Version None)
Quarter: 2005Q3

REPORT INFORMATION
  Report Type: 
  Country: None (occurrence: None)
  Receive Date: 20050824
  Receipt Date: 20050811
  Transmission Date: 20060218
  Serious: Yes (Hospitalization)
  Sender: FDA-Public Use
  Company Number: 2005AL003166

PATIENT
  Age: 56 Year
  Sex: Female

DRUGS (7)
  1. SERAX [Suspect]
     Dosage: PO
     Route: 048
  2. LAMALINE/OLD FORM/ ({NULL}) [Suspect]
     Dosage: PO
     Route: 048
  3. NOCERTONE ({NULL}) [Suspect]
     Dates: end: 20050619
  4. PROZAC [Suspect]
     Dosage: PO
     Route: 048
     Dates: end: 20050619
  5. LEVOTHYROXINE SODIUM [Concomitant]
  6. ZOLPIDEM [Concomitant]
  7. FORLAX [Concomitant]

REACTIONS (9)
  - CATATONIA [None]
  - COGWHEEL RIGIDITY [None]
  - EXTRAPYRAMIDAL DISORDER [None]
  - FALL [None]
  - FLAT AFFECT [None]
  - HYPERTROPHY [None]
  - MUSCLE SPASTICITY [None]
  - PSYCHOMOTOR SKILLS IMPAIRED [None]
  - VENOUS ANGIOMA OF BRAIN [None]
